FAERS Safety Report 7082618-3 (Version None)
Quarter: 2010Q4

REPORT INFORMATION
  Report Type: 
  Country: None (occurrence: None)
  Receive Date: 20101104
  Receipt Date: 20101022
  Transmission Date: 20110411
  Serious: Yes (Other)
  Sender: FDA-Public Use
  Company Number: DE-JNJFOC-20101007334

PATIENT
  Age: 49 Year
  Sex: Female

DRUGS (2)
  1. OFLOXACIN [Suspect]
     Indication: COUGH
     Route: 065
  2. OFLOXACIN [Suspect]
     Indication: URINARY TRACT INFECTION
     Route: 065

REACTIONS (2)
  - EOSINOPHILIA [None]
  - HEPATIC INFILTRATION EOSINOPHILIC [None]
